FAERS Safety Report 18339854 (Version 1)
Quarter: 2020Q4

REPORT INFORMATION
  Report Type: Other
  Country: TR (occurrence: TR)
  Receive Date: 20201002
  Receipt Date: 20201002
  Transmission Date: 20210113
  Serious: Yes (Death)
  Sender: FDA-Public Use
  Company Number: TR-KNIGHT THERAPEUTICS (USA) INC.-2092375

PATIENT
  Age: 21 Year
  Sex: Male

DRUGS (3)
  1. MILTEFOSINE, OVERSEAS-ACQUIRED (APPARENTLY DONATED BY THE PREVIOUS MAH [Suspect]
     Active Substance: MILTEFOSINE
     Route: 065
  2. MILTEFOSINE [Suspect]
     Active Substance: MILTEFOSINE
     Indication: VISCERAL LEISHMANIASIS
     Route: 065
     Dates: start: 2014, end: 2014
  3. GENTAMICIN. [Concomitant]
     Active Substance: GENTAMICIN
     Route: 065

REACTIONS (4)
  - Drug resistance [Fatal]
  - Drug ineffective for unapproved indication [Fatal]
  - Leishmaniasis [Fatal]
  - Off label use [Unknown]
